FAERS Safety Report 4555239-1 (Version None)
Quarter: 2004Q4

REPORT INFORMATION
  Report Type: 
  Country: None (occurrence: None)
  Receive Date: 20041227
  Receipt Date: 20040907
  Transmission Date: 20050328
  Serious: No
  Sender: FDA-Public Use
  Company Number: 04P-163-0272695-00

PATIENT
  Age: 41 Year
  Sex: Female
  Weight: 45.3597 kg

DRUGS (11)
  1. HUMIRA [Suspect]
     Indication: RHEUMATOID ARTHRITIS
     Dosage: 40 MG, 1 IN 2 WK, SUBCUTANEOUS
     Route: 058
     Dates: start: 20040301, end: 20040701
  2. ALENDRONATE SODIUM [Concomitant]
  3. PREDNISONE [Concomitant]
  4. DIAZIDE [Concomitant]
  5. BUCINDOLOL HYDROCHLORIDE [Concomitant]
  6. MORPHINE SULFATE [Concomitant]
  7. OXYCOCET [Concomitant]
  8. METHOTREXATE SODIUM [Concomitant]
  9. FLUOXETINE HYDROCHLORIDE [Concomitant]
  10. DIAZEPAM [Concomitant]
  11. DUODERM HYDROACTIVE GEL [Concomitant]

REACTIONS (5)
  - ANOREXIA [None]
  - COUGH [None]
  - DRUG INEFFECTIVE [None]
  - UPPER RESPIRATORY TRACT CONGESTION [None]
  - VOMITING [None]
